FAERS Safety Report 18366209 (Version 3)
Quarter: 2020Q4

REPORT INFORMATION
  Report Type: Spontaneous
  Country: BR (occurrence: BR)
  Receive Date: 20201009
  Receipt Date: 20201120
  Transmission Date: 20210114
  Serious: Yes (Other)
  Sender: FDA-Public Use
  Company Number: BR-PFIZER INC-2020388666

PATIENT
  Age: 65 Year
  Sex: Female

DRUGS (2)
  1. XALATAN [Suspect]
     Active Substance: LATANOPROST
     Indication: GLAUCOMA
     Dosage: 1 DROP, 1X/DAY A DROP AT NIGHT IN EACH EYE
     Dates: start: 2010
  2. XALATAN [Suspect]
     Active Substance: LATANOPROST
     Dosage: 1 DROP, 1X/DAY A DROP AT NIGHT IN EACH EYE

REACTIONS (9)
  - Hypoacusis [Not Recovered/Not Resolved]
  - Hemiplegia [Unknown]
  - Cerebrovascular accident [Unknown]
  - Memory impairment [Not Recovered/Not Resolved]
  - Hypertension [Unknown]
  - Vasodilatation [Unknown]
  - Nervousness [Unknown]
  - Fall [Unknown]
  - Lower limb fracture [Unknown]

NARRATIVE: CASE EVENT DATE: 2019
